FAERS Safety Report 8780252 (Version 1)
Quarter: 2012Q4

REPORT INFORMATION
  Report Type: Spontaneous
  Country: US (occurrence: None)
  Receive Date: 20120905
  Receipt Date: 20120905
  Transmission Date: 20130627
  Serious: No
  Sender: FDA-Public Use
  Company Number: None

PATIENT
  Age: 57 Year
  Sex: Female
  Weight: 77.11 kg

DRUGS (3)
  1. VIIBRYD [Suspect]
  2. VIIBRYD [Suspect]
     Indication: DEPRESSION
  3. VIIBRYD [Suspect]
     Indication: ANXIETY

REACTIONS (3)
  - Nausea [None]
  - Diarrhoea [None]
  - Dizziness [None]
